FAERS Safety Report 15928619 (Version 2)
Quarter: 2019Q3

REPORT INFORMATION
  Report Type: Spontaneous
  Country: US (occurrence: US)
  Receive Date: 20190206
  Receipt Date: 20190719
  Transmission Date: 20191004
  Serious: No
  Sender: FDA-Public Use
  Company Number: US-SA-2019SA028457

PATIENT
  Age: 42 Year
  Sex: Male

DRUGS (1)
  1. AUBAGIO [Suspect]
     Active Substance: TERIFLUNOMIDE
     Indication: MULTIPLE SCLEROSIS
     Dosage: 14 MG, QD
     Route: 048
     Dates: start: 20181023

REACTIONS (5)
  - Tremor [Unknown]
  - Muscle spasms [Unknown]
  - Temperature intolerance [Unknown]
  - Dry skin [Unknown]
  - Skin atrophy [Unknown]

NARRATIVE: CASE EVENT DATE: 20190409
